FAERS Safety Report 8384941-9 (Version None)
Quarter: 2012Q2

REPORT INFORMATION
  Report Type: 
  Country: None (occurrence: None)
  Receive Date: 20120524
  Receipt Date: 20120521
  Transmission Date: 20120825
  Serious: Yes (Hospitalization, Other)
  Sender: FDA-Public Use
  Company Number: US-AMGEN-USASP2011059931

PATIENT
  Age: 58 Year
  Sex: Male
  Weight: 93.424 kg

DRUGS (3)
  1. NPLATE [Suspect]
     Indication: IDIOPATHIC THROMBOCYTOPENIC PURPURA
     Dosage: 1 MUG/KG, QWK
     Dates: start: 20110902
  2. INSULIN [Concomitant]
     Indication: DIABETES MELLITUS
  3. PREDNISOLONE [Concomitant]
     Indication: IDIOPATHIC THROMBOCYTOPENIC PURPURA

REACTIONS (4)
  - DEEP VEIN THROMBOSIS [None]
  - NODULE [None]
  - PULMONARY EMBOLISM [None]
  - CARDIOMEGALY [None]
